FAERS Safety Report 18608248 (Version 2)
Quarter: 2021Q1

REPORT INFORMATION
  Report Type: Report from Study
  Country: PK (occurrence: PK)
  Receive Date: 20201212
  Receipt Date: 20210112
  Transmission Date: 20210419
  Serious: Yes (Death)
  Sender: FDA-Public Use
  Company Number: NVSC2020PK329846

PATIENT
  Age: 1 Day
  Sex: Male

DRUGS (1)
  1. COSENTYX [Suspect]
     Active Substance: SECUKINUMAB
     Indication: FOETAL EXPOSURE DURING PREGNANCY
     Dosage: 150 MG, QD (MATERNAL EXPOSURE DURING PREGNANCY)
     Route: 064

REACTIONS (2)
  - Death [Fatal]
  - Foetal exposure during pregnancy [Unknown]

NARRATIVE: CASE EVENT DATE: 20201022
